FAERS Safety Report 7547013-9 (Version None)
Quarter: 2011Q2

REPORT INFORMATION
  Report Type: 
  Country: None (occurrence: None)
  Receive Date: 20110614
  Receipt Date: 20110602
  Transmission Date: 20111010
  Serious: Yes (Hospitalization)
  Sender: FDA-Public Use
  Company Number: PHHY2011JP48304

PATIENT

DRUGS (4)
  1. PREDNISOLONE [Suspect]
     Indication: POLYMYALGIA RHEUMATICA
     Dosage: 15 MG, UNK
  2. GLICLAZIDE [Concomitant]
     Dosage: 10 MG, UNK
  3. ATENOLOL [Concomitant]
     Dosage: 50 MG, UNK
  4. CANDESARTAN CILEXETIL [Concomitant]
     Dosage: 8 MG, UNK

REACTIONS (16)
  - VOMITING [None]
  - PHAEOCHROMOCYTOMA CRISIS [None]
  - CHILLS [None]
  - ADRENAL NEOPLASM [None]
  - HYPERHIDROSIS [None]
  - PERIPHERAL COLDNESS [None]
  - SINUS TACHYCARDIA [None]
  - HYPERKINETIC HEART SYNDROME [None]
  - CARDIOMEGALY [None]
  - RHABDOMYOLYSIS [None]
  - BLOOD CREATININE INCREASED [None]
  - PALPITATIONS [None]
  - HEADACHE [None]
  - NAUSEA [None]
  - LEFT VENTRICULAR HYPERTROPHY [None]
  - BLOOD UREA INCREASED [None]
